FAERS Safety Report 7374662-3 (Version None)
Quarter: 2011Q1

REPORT INFORMATION
  Report Type: 
  Country: None (occurrence: None)
  Receive Date: 20110325
  Receipt Date: 20100910
  Transmission Date: 20110831
  Serious: No
  Sender: FDA-Public Use
  Company Number: US-MYLANLABS-2010S1011616

PATIENT
  Age: 67 Year
  Sex: Male

DRUGS (4)
  1. OXYCONTIN [Concomitant]
     Dosage: USED AT 60 HOURS WHEN PATCH WEARS OFF
     Route: 048
  2. FENTANYL-100 [Suspect]
     Indication: OSTEOARTHRITIS
     Dosage: Q72HR THEN Q48HR
     Route: 062
     Dates: start: 20090101
  3. BLOOD PRESSURE MEDICATION [Concomitant]
  4. DRUG USED IN DIABETES [Concomitant]

REACTIONS (3)
  - DRUG WITHDRAWAL SYNDROME [None]
  - OSTEOARTHRITIS [None]
  - DRUG EFFECT DECREASED [None]
